FAERS Safety Report 9242627 (Version 1)
Quarter: 2013Q2

REPORT INFORMATION
  Report Type: Spontaneous
  Country: CA (occurrence: CA)
  Receive Date: 20130419
  Receipt Date: 20130419
  Transmission Date: 20140414
  Serious: Yes (Hospitalization)
  Sender: FDA-Public Use
  Company Number: CA-TEVA-399409USA

PATIENT
  Age: 77 Year
  Sex: Female
  Weight: 88 kg

DRUGS (5)
  1. AMLODIPINE [Suspect]
  2. BISOPROLOL [Concomitant]
  3. DILTIAZEM [Concomitant]
  4. LASIX [Concomitant]
  5. WARFARIN [Concomitant]

REACTIONS (4)
  - Body temperature fluctuation [Recovered/Resolved]
  - Chills [Recovered/Resolved]
  - Dyspnoea [Recovered/Resolved]
  - Nausea [Recovered/Resolved]
